FAERS Safety Report 23613137 (Version 1)
Quarter: 2024Q1

REPORT INFORMATION
  Report Type: Report from Study
  Country: US (occurrence: US)
  Receive Date: 20240308
  Receipt Date: 20240308
  Transmission Date: 20240410
  Serious: Yes (Other)
  Sender: FDA-Public Use
  Company Number: US-JAZZ-2022-US-034714

PATIENT
  Sex: Female

DRUGS (5)
  1. XYREM [Suspect]
     Active Substance: SODIUM OXYBATE
     Indication: Narcolepsy
     Dosage: UNK
  2. HERBALS [Concomitant]
     Active Substance: HERBALS
     Dosage: UNK
     Dates: start: 20140601
  3. VITAMIN B COMPLEX [Concomitant]
     Active Substance: CYANOCOBALAMIN\DEXPANTHENOL\NIACINAMIDE\PYRIDOXINE HYDROCHLORIDE\RIBOFLAVIN 5^-PHOSPHATE SODIUM\THIA
     Dosage: UNK
     Dates: start: 20150601
  4. PERCOCET [Concomitant]
     Active Substance: ACETAMINOPHEN\OXYCODONE HYDROCHLORIDE
     Dosage: 10-325 MG TABLET
     Dates: start: 20180601
  5. EVENING PRIMROSE OIL [OENOTHERA BIENNIS] [Concomitant]
     Dosage: SOFTGEL
     Dates: start: 20201201

REACTIONS (6)
  - Hallucination, visual [Unknown]
  - Somnolence [Unknown]
  - Snoring [Unknown]
  - Hangover [Unknown]
  - Product dose omission issue [Unknown]
  - Product administration interrupted [Unknown]
